FAERS Safety Report 6282233-5 (Version None)
Quarter: 2009Q3

REPORT INFORMATION
  Report Type: 
  Country: None (occurrence: None)
  Receive Date: 20090724
  Receipt Date: 20090713
  Transmission Date: 20100115
  Serious: Yes (Other)
  Sender: FDA-Public Use
  Company Number: US-WYE-H10150209

PATIENT
  Age: 40 Year
  Sex: Male
  Weight: 104.42 kg

DRUGS (1)
  1. DRISTAN [Suspect]
     Indication: NASAL CONGESTION
     Dosage: 1 SPRAY ONCE A DAY OR EVERY 24 HOURS
     Route: 045
     Dates: start: 20090601, end: 20090101

REACTIONS (3)
  - EPISTAXIS [None]
  - NASAL DISORDER [None]
  - SINUSITIS [None]
